FAERS Safety Report 7823544-9 (Version None)
Quarter: 2011Q4

REPORT INFORMATION
  Report Type: 
  Country: None (occurrence: None)
  Receive Date: 20111019
  Receipt Date: 20111007
  Transmission Date: 20120403
  Serious: Yes (Hospitalization)
  Sender: FDA-Public Use
  Company Number: GB-JNJFOC-20111004957

PATIENT
  Sex: Female

DRUGS (3)
  1. SIMPONI [Suspect]
     Route: 058
     Dates: start: 20110627
  2. SIMPONI [Suspect]
     Route: 058
     Dates: start: 20110831
  3. SIMPONI [Suspect]
     Indication: PRODUCT USED FOR UNKNOWN INDICATION
     Route: 058
     Dates: start: 20110729

REACTIONS (10)
  - HYPERHIDROSIS [None]
  - DYSPNOEA [None]
  - MALAISE [None]
  - COUGH [None]
  - PAIN IN EXTREMITY [None]
  - ANXIETY [None]
  - OEDEMA PERIPHERAL [None]
  - NASAL CONGESTION [None]
  - OROPHARYNGEAL PAIN [None]
  - ABDOMINAL PAIN UPPER [None]
